FAERS Safety Report 24048431 (Version 1)
Quarter: 2024Q3

REPORT INFORMATION
  Report Type: Spontaneous
  Country: US (occurrence: US)
  Receive Date: 20240704
  Receipt Date: 20240704
  Transmission Date: 20241016
  Serious: Yes (Other)
  Sender: STRIDES
  Company Number: US-STRIDES ARCOLAB LIMITED-2024SP007760

PATIENT
  Age: 67 Year
  Sex: Male

DRUGS (3)
  1. PHENOBARBITAL [Suspect]
     Active Substance: PHENOBARBITAL
     Indication: Alcohol withdrawal syndrome
     Dosage: UNK, CUMULATIVE DOSE 130 MILLIGRAM
     Route: 065
  2. DIAZEPAM [Suspect]
     Active Substance: DIAZEPAM
     Indication: Alcohol withdrawal syndrome
     Dosage: UNK
     Route: 042
  3. FLUMAZENIL [Suspect]
     Active Substance: FLUMAZENIL
     Indication: Toxic encephalopathy
     Dosage: UNK
     Route: 065

REACTIONS (2)
  - Cirrhosis alcoholic [Unknown]
  - Off label use [Unknown]
